FAERS Safety Report 8771495 (Version 1)
Quarter: 2012Q4

REPORT INFORMATION
  Report Type: 
  Country: US (occurrence: US)
  Receive Date: 20120906
  Receipt Date: 20120906
  Transmission Date: 20130627
  Serious: Yes (Hospitalization)
  Sender: FDA-Public Use
  Company Number: US-BAYER-2012-091201

PATIENT
  Age: 20 Year
  Sex: Female
  Weight: 99.77 kg

DRUGS (9)
  1. YAZ [Suspect]
  2. FLONASE [Concomitant]
     Dosage: 50 ?g, QD 2 sprays
     Route: 045
  3. ZYRTEC-D [Concomitant]
     Dosage: 5; I tab QD
     Route: 048
  4. GLUCOPHAGE XR [Concomitant]
     Dosage: 500 mg, QD
     Route: 048
  5. LEVAQUIN [Concomitant]
     Dosage: 250 mg, UNK
     Route: 048
     Dates: start: 20070725
  6. KETOROLAC [Concomitant]
     Dosage: 10 mg, UNK
     Route: 048
     Dates: start: 20070725
  7. METFORMIN HCL [Concomitant]
     Dosage: 500 mg, UNK
     Route: 048
     Dates: start: 20070815
  8. BENICAR [Concomitant]
     Indication: HYPERTENSION
  9. PROTONIX [Concomitant]

REACTIONS (2)
  - Deep vein thrombosis [Recovered/Resolved]
  - Pulmonary embolism [None]
